FAERS Safety Report 8522365-1 (Version None)
Quarter: 2012Q3

REPORT INFORMATION
  Report Type: 
  Country: None (occurrence: None)
  Receive Date: 20120719
  Receipt Date: 20120712
  Transmission Date: 20120928
  Serious: Yes (Other)
  Sender: FDA-Public Use
  Company Number: US-ABBOTT-12P-163-0939111-00

PATIENT
  Sex: Female
  Weight: 55.842 kg

DRUGS (2)
  1. HUMIRA [Suspect]
     Dates: start: 20120421
  2. HUMIRA [Suspect]
     Indication: CROHN'S DISEASE
     Route: 058
     Dates: start: 20120101, end: 20120201

REACTIONS (5)
  - MALAISE [None]
  - TREATMENT FAILURE [None]
  - CROHN'S DISEASE [None]
  - SMALL INTESTINAL STENOSIS [None]
  - SMALL INTESTINAL OBSTRUCTION [None]
